FAERS Safety Report 5246918-1 (Version None)
Quarter: 2007Q1

REPORT INFORMATION
  Report Type: 
  Country: None (occurrence: None)
  Receive Date: 20070226
  Receipt Date: 20070220
  Transmission Date: 20070707
  Serious: Yes (Congenital Anomaly, Other)
  Sender: FDA-Public Use
  Company Number: GB-BOEHRINGER INGELHEIM GMBH, GERMANY-2006-UK-04057UK

PATIENT
  Weight: 3.05 kg

DRUGS (4)
  1. VIRAMUNE [Suspect]
     Route: 064
  2. COMBIVIR [Suspect]
     Route: 064
  3. ASPIRIN [Concomitant]
     Route: 064
  4. CLEXANE [Concomitant]
     Route: 064

REACTIONS (1)
  - HAEMANGIOMA [None]
